FAERS Safety Report 6708459-1 (Version None)
Quarter: 2010Q2

REPORT INFORMATION
  Report Type: 
  Country: None (occurrence: None)
  Receive Date: 20100503
  Receipt Date: 20090407
  Transmission Date: 20101027
  Serious: Yes (Hospitalization)
  Sender: FDA-Public Use
  Company Number: US-ASTRAZENECA-2009UW08791

PATIENT

DRUGS (3)
  1. NEXIUM [Suspect]
     Route: 048
  2. BLOOD PRESSURE MEDICATION [Concomitant]
  3. COPD MEDICATION [Concomitant]

REACTIONS (1)
  - LIVER FUNCTION TEST ABNORMAL [None]
